FAERS Safety Report 7844271-8 (Version None)
Quarter: 2011Q4

REPORT INFORMATION
  Report Type: 
  Country: None (occurrence: None)
  Receive Date: 20111025
  Receipt Date: 20111011
  Transmission Date: 20120403
  Serious: Yes (Other)
  Sender: FDA-Public Use
  Company Number: US-ELI_LILLY_AND_COMPANY-US201104001648

PATIENT
  Sex: Female
  Weight: 46.712 kg

DRUGS (22)
  1. METOPROLOL TARTRATE [Concomitant]
     Dosage: 25 MG, QD
  2. FOLIC ACID [Concomitant]
     Dosage: 1 MG, QD
  3. FORTEO [Suspect]
     Dosage: 20 UG, QD
     Route: 058
  4. FORTEO [Suspect]
     Dosage: 20 UG, QD
     Route: 058
  5. METOPROLOL TARTRATE [Concomitant]
     Dosage: 50 MG, QD
  6. LEFLUNOMIDE [Concomitant]
     Dosage: 20 MG, QD
  7. FORTEO [Suspect]
     Dosage: 20 UG, QD
     Route: 058
  8. FORTEO [Suspect]
     Dosage: 20 UG, QD
     Route: 058
  9. ASPIRIN [Concomitant]
     Dosage: 81 MG, QD
  10. NEXIUM [Concomitant]
     Dosage: 40 MG, QD
  11. PRESTYL [Concomitant]
  12. CALCIUM 600 PLUS VITAMIN D [Concomitant]
     Dosage: 600 MG, UNKNOWN
  13. SIMVASTATIN [Concomitant]
     Dosage: 80 MG, QD
  14. ZOCOR [Concomitant]
     Dosage: 40 MG, QD
  15. AMLODIPINE [Concomitant]
     Dosage: 50 MG, QD
  16. MONOPRIL [Concomitant]
  17. VITAMIN D [Concomitant]
     Dosage: 50000 IU, QD
  18. CORTICOSTEROID NOS [Concomitant]
  19. FORTEO [Suspect]
     Indication: OSTEOPOROSIS
     Dosage: 20 UG, QD
     Route: 058
     Dates: start: 20101026
  20. FORTEO [Suspect]
     Dosage: 20 UG, QD
     Route: 058
  21. LYRICA [Concomitant]
     Indication: NEURALGIA
     Dosage: 50 MG, TID
  22. PRISTIQ [Concomitant]
     Dosage: 50 MG, QD

REACTIONS (22)
  - MALAISE [None]
  - DYSSTASIA [None]
  - FEMUR FRACTURE [None]
  - PAIN IN EXTREMITY [None]
  - DIARRHOEA [None]
  - NAUSEA [None]
  - ARTHROPATHY [None]
  - INFLUENZA LIKE ILLNESS [None]
  - NEURALGIA [None]
  - PELVIC FRACTURE [None]
  - HIP FRACTURE [None]
  - ALOPECIA [None]
  - FALL [None]
  - WEIGHT INCREASED [None]
  - ASTHENIA [None]
  - BALANCE DISORDER [None]
  - INFLUENZA [None]
  - GROIN PAIN [None]
  - VOMITING [None]
  - BLOOD CHOLESTEROL DECREASED [None]
  - WEIGHT DECREASED [None]
  - INJECTION SITE HAEMATOMA [None]
